FAERS Safety Report 7746333-2 (Version None)
Quarter: 2011Q3

REPORT INFORMATION
  Report Type: 
  Country: None (occurrence: None)
  Receive Date: 20110907
  Receipt Date: 20110822
  Transmission Date: 20111222
  Serious: Yes (Disabling)
  Sender: FDA-Public Use
  Company Number: 2011AP001846

PATIENT
  Age: 63 Year
  Sex: Female

DRUGS (12)
  1. AMLODIPINE [Concomitant]
  2. SALMETEROL XINAFOATE (SALMETEROL XINAFOATE) [Concomitant]
  3. CHOLECALCIFEROL (COLECALCIFEROL) [Concomitant]
  4. CALCIUM CARBONATE [Concomitant]
  5. DOXAZOSIN (DOXAZONSIN) [Concomitant]
  6. SALMETEROL XINAFOATE (SALMETEROL XINAFOATE) [Concomitant]
  7. VITAMIN D [Concomitant]
  8. FLUTICASONE PROPIONATE [Concomitant]
  9. ALENDRONATE SODIUM [Suspect]
     Indication: OSTEOPOROSIS
     Dosage: 70 MG;QW
     Route: 048
     Dates: start: 20081217, end: 20110804
  10. RABEPRAZOLE SODIUM [Concomitant]
  11. RAMIPRIL [Concomitant]
  12. TIOTROPIUM BROMIDE (TIOTROPIUM BROMIDE) [Concomitant]

REACTIONS (3)
  - JAW FRACTURE [None]
  - OSTEONECROSIS OF JAW [None]
  - ORAL DISCHARGE [None]
